FAERS Safety Report 10101073 (Version 1)
Quarter: 2014Q2

REPORT INFORMATION
  Report Type: Spontaneous
  Country: US (occurrence: US)
  Receive Date: 20140424
  Receipt Date: 20140424
  Transmission Date: 20141212
  Serious: No
  Sender: FDA-Public Use
  Company Number: US-BIOGENIDEC-2014BI035851

PATIENT
  Sex: Female

DRUGS (1)
  1. AVONEX [Suspect]
     Indication: MULTIPLE SCLEROSIS
     Route: 030
     Dates: start: 19960701

REACTIONS (4)
  - Intervertebral disc protrusion [Unknown]
  - Fall [Recovered/Resolved]
  - Pain [Recovered/Resolved]
  - Fatigue [Not Recovered/Not Resolved]
